FAERS Safety Report 9913855 (Version 1)
Quarter: 2014Q1

REPORT INFORMATION
  Report Type: Spontaneous
  Country: US (occurrence: None)
  Receive Date: 20140218
  Receipt Date: 20140218
  Transmission Date: 20141002
  Serious: Yes (Other)
  Sender: FDA-Public Use
  Company Number: None

PATIENT
  Age: 55 Year
  Sex: Female
  Weight: 98.2 kg

DRUGS (1)
  1. TEMOZOLOMIDE [Suspect]
     Indication: BRAIN NEOPLASM MALIGNANT
     Dosage: D14 X 5 Q28DAY
     Route: 048
     Dates: start: 20140122, end: 20140125

REACTIONS (6)
  - Nausea [None]
  - Vomiting [None]
  - Vomiting [None]
  - Underdose [None]
  - Abdominal discomfort [None]
  - Product substitution issue [None]
